FAERS Safety Report 18156081 (Version 7)
Quarter: 2022Q3

REPORT INFORMATION
  Report Type: Other
  Country: CA (occurrence: CA)
  Receive Date: 20200817
  Receipt Date: 20220720
  Transmission Date: 20221027
  Serious: Yes (Death, Life-Threatening, Hospitalization, Disabling, Other)
  Sender: FDA-Public Use
  Company Number: CA-CELLTRION INC.-2020CA025229

PATIENT

DRUGS (178)
  1. TRASTUZUMAB [Suspect]
     Active Substance: TRASTUZUMAB
     Indication: Breast cancer
     Dosage: UNK
     Route: 065
  2. TRASTUZUMAB [Suspect]
     Active Substance: TRASTUZUMAB
     Indication: Breast cancer female
     Dosage: UNK
     Route: 065
  3. ADRIAMYCIN [Suspect]
     Active Substance: DOXORUBICIN HYDROCHLORIDE
     Indication: Breast cancer
     Dosage: 106.0 MG
     Route: 042
  4. AMIODARONE HYDROCHLORIDE [Suspect]
     Active Substance: AMIODARONE HYDROCHLORIDE
     Indication: Product used for unknown indication
     Dosage: UNK
     Route: 065
  5. AMIODARONE HYDROCHLORIDE [Suspect]
     Active Substance: AMIODARONE HYDROCHLORIDE
     Dosage: UNK
     Route: 065
  6. AMIODARONE HYDROCHLORIDE [Suspect]
     Active Substance: AMIODARONE HYDROCHLORIDE
     Dosage: UNK
     Route: 065
  7. AMIODARONE [Suspect]
     Active Substance: AMIODARONE
     Indication: Product used for unknown indication
     Route: 065
  8. AZITHROMYCIN [Suspect]
     Active Substance: AZITHROMYCIN
     Indication: Product used for unknown indication
     Dosage: 500 MG, 1 EVERY 1 DAY
     Route: 042
  9. AZITHROMYCIN [Suspect]
     Active Substance: AZITHROMYCIN
     Dosage: 500 MG, 1 EVERY 1 DAY
     Route: 042
  10. AZITHROMYCIN [Suspect]
     Active Substance: AZITHROMYCIN
     Indication: Product used for unknown indication
     Dosage: 500 MG, 1 EVERY 1 DAYS
     Route: 042
  11. AZITHROMYCIN [Suspect]
     Active Substance: AZITHROMYCIN
     Dosage: 500 MG, 1 EVERY 1 DAYS
     Route: 042
  12. AZITHROMYCIN [Suspect]
     Active Substance: AZITHROMYCIN
     Dosage: 500 MG, 1 EVERY 1 DAYS
     Route: 042
  13. AZITHROMYCIN [Suspect]
     Active Substance: AZITHROMYCIN
     Dosage: 500 MG, 1 EVERY 1 DAYS
     Route: 042
  14. AZITHROMYCIN [Suspect]
     Active Substance: AZITHROMYCIN
     Indication: Product used for unknown indication
     Dosage: 500 MG, 1 EVERY 1 DAYS
     Route: 042
  15. AZITHROMYCIN [Suspect]
     Active Substance: AZITHROMYCIN
     Dosage: 500 MG, 1 EVERY 1 DAYS
     Route: 042
  16. CEFTRIAXONE SODIUM [Suspect]
     Active Substance: CEFTRIAXONE SODIUM
     Indication: Product used for unknown indication
     Dosage: 1 G, 1 EVERY 1 DAY
     Route: 042
  17. CEFTRIAXONE SODIUM [Suspect]
     Active Substance: CEFTRIAXONE SODIUM
     Dosage: 1 G, 1 EVERY 1 DAY
     Route: 042
  18. CEFTRIAXONE SODIUM [Suspect]
     Active Substance: CEFTRIAXONE SODIUM
     Dosage: 1 G, 6 EVERY 1 DAYS
     Route: 042
  19. CEFTRIAXONE SODIUM [Suspect]
     Active Substance: CEFTRIAXONE SODIUM
     Dosage: 1 GRAM, 1 EVERY 4 HOURS
     Route: 042
  20. CEFTRIAXONE SODIUM [Suspect]
     Active Substance: CEFTRIAXONE SODIUM
     Dosage: 1 G, 1 EVERY 1 DAY
     Route: 042
  21. CEFTRIAXONE SODIUM [Suspect]
     Active Substance: CEFTRIAXONE SODIUM
     Dosage: 1 G, 1 EVERY 1 DAY
     Route: 042
  22. CEFTRIAXONE SODIUM [Suspect]
     Active Substance: CEFTRIAXONE SODIUM
     Dosage: 1 GRAM, 1 EVERY 4 HOURS
     Route: 042
  23. CYCLOPHOSPHAMIDE [Suspect]
     Active Substance: CYCLOPHOSPHAMIDE
     Indication: Breast cancer female
     Dosage: 1060 MILLIGRAM, 1 EVERY 2 WEEKS
     Route: 042
  24. CYCLOPHOSPHAMIDE [Suspect]
     Active Substance: CYCLOPHOSPHAMIDE
     Indication: Breast cancer
     Dosage: 1060 MILLIGRAM, 1 EVERY 2 WEEKS
     Route: 042
  25. CYCLOPHOSPHAMIDE [Suspect]
     Active Substance: CYCLOPHOSPHAMIDE
     Dosage: 1060 MILLIGRAM, CYCLICAL
     Route: 042
  26. CYCLOPHOSPHAMIDE [Suspect]
     Active Substance: CYCLOPHOSPHAMIDE
     Dosage: 1060 MILLIGRAM, 1 EVERY 1 DAY
     Route: 042
  27. CYCLOPHOSPHAMIDE [Suspect]
     Active Substance: CYCLOPHOSPHAMIDE
     Dosage: 1060 MILLIGRAM, CYCLICAL
     Route: 042
  28. CYCLOPHOSPHAMIDE [Suspect]
     Active Substance: CYCLOPHOSPHAMIDE
     Dosage: 1060 MILLIGRAM, CYCLICAL
     Route: 042
  29. CYCLOPHOSPHAMIDE [Suspect]
     Active Substance: CYCLOPHOSPHAMIDE
     Dosage: 1060 MILLIGRAM, 1 EVERY 2 WEEKS
     Route: 042
  30. CYCLOPHOSPHAMIDE [Suspect]
     Active Substance: CYCLOPHOSPHAMIDE
     Dosage: 125 MILLIGRAM
     Route: 042
  31. CYCLOPHOSPHAMIDE [Suspect]
     Active Substance: CYCLOPHOSPHAMIDE
     Dosage: 1060 MILLIGRAM, 1 EVERY 2 WEEKS
     Route: 042
  32. CYCLOPHOSPHAMIDE [Suspect]
     Active Substance: CYCLOPHOSPHAMIDE
     Dosage: 125 MILLIGRAM
     Route: 042
  33. CYCLOPHOSPHAMIDE [Suspect]
     Active Substance: CYCLOPHOSPHAMIDE
     Dosage: 1060 MILLIGRAM, 1 EVERY 1 DAY
     Route: 042
  34. CYCLOPHOSPHAMIDE [Suspect]
     Active Substance: CYCLOPHOSPHAMIDE
     Dosage: 1060 MILLIGRAM, CYCLICAL
     Route: 042
  35. CYCLOPHOSPHAMIDE [Suspect]
     Active Substance: CYCLOPHOSPHAMIDE
     Dosage: 1060 MILLIGRAM, 1 EVERY 2 WEEKS
     Route: 042
  36. CYCLOPHOSPHAMIDE [Suspect]
     Active Substance: CYCLOPHOSPHAMIDE
     Dosage: 1060 MILLIGRAM, CYCLICAL
     Route: 042
  37. CYCLOPHOSPHAMIDE [Suspect]
     Active Substance: CYCLOPHOSPHAMIDE
     Dosage: 1060 MILLIGRAM, CYCLICAL
     Route: 042
  38. CYCLOPHOSPHAMIDE [Suspect]
     Active Substance: CYCLOPHOSPHAMIDE
     Dosage: 1060 MILLIGRAM, CYCLICAL
     Route: 042
  39. CYCLOPHOSPHAMIDE [Suspect]
     Active Substance: CYCLOPHOSPHAMIDE
     Indication: Breast cancer
     Dosage: 1060 MG, 1 EVERY 2 WEEKS
     Route: 042
  40. CYCLOPHOSPHAMIDE [Suspect]
     Active Substance: CYCLOPHOSPHAMIDE
     Indication: Breast cancer female
     Dosage: 1060 MG, CYCLICAL
     Route: 042
  41. CYCLOPHOSPHAMIDE [Suspect]
     Active Substance: CYCLOPHOSPHAMIDE
     Indication: Breast cancer
     Dosage: 1060 MG, 1 EVERY 2 WEEKS
     Route: 042
  42. CYCLOPHOSPHAMIDE [Suspect]
     Active Substance: CYCLOPHOSPHAMIDE
     Indication: Breast cancer female
     Dosage: 1060 MG, 1 EVERY 2 WEEKS
     Route: 042
  43. CYCLOPHOSPHAMIDE [Suspect]
     Active Substance: CYCLOPHOSPHAMIDE
     Dosage: 125 MG
     Route: 042
  44. CYCLOPHOSPHAMIDE [Suspect]
     Active Substance: CYCLOPHOSPHAMIDE
     Dosage: 1060 MG, 1 EVERY 1 DAYS
     Route: 042
  45. DIGOXIN [Suspect]
     Active Substance: DIGOXIN
     Indication: Product used for unknown indication
     Dosage: 10 MILLIGRAM, 1 EVERY 1 HOUR
     Route: 042
  46. DIGOXIN [Suspect]
     Active Substance: DIGOXIN
     Dosage: 0.25 MG, 6 EVERY 1 DAY
     Route: 042
  47. DIGOXIN [Suspect]
     Active Substance: DIGOXIN
     Dosage: 10 MILLIGRAM, 1 EVERY 4 HOURS
     Route: 042
  48. DIGOXIN [Suspect]
     Active Substance: DIGOXIN
     Indication: Product used for unknown indication
     Dosage: 10 MG
     Route: 042
  49. DIGOXIN [Suspect]
     Active Substance: DIGOXIN
     Dosage: 0.25 MG
     Route: 042
  50. DIGOXIN [Suspect]
     Active Substance: DIGOXIN
     Dosage: 0.25 MG, 6 EVERY 1 DAYS
     Route: 042
  51. DIGOXIN [Suspect]
     Active Substance: DIGOXIN
     Dosage: 10 MG
     Route: 042
  52. DIGOXIN [Suspect]
     Active Substance: DIGOXIN
     Dosage: 0.25 MG, 1 EVERY 4 HOURS
     Route: 042
  53. DIGOXIN [Suspect]
     Active Substance: DIGOXIN
     Indication: Product used for unknown indication
     Dosage: 0.25 MILLIGRAM
     Route: 042
  54. DIGOXIN [Suspect]
     Active Substance: DIGOXIN
     Dosage: 0.25 MILLIGRAM, 1 EVERY 4 HOURS
     Route: 042
  55. DIGOXIN [Suspect]
     Active Substance: DIGOXIN
     Dosage: 10 MILLIGRAM
     Route: 042
  56. DIGOXIN [Suspect]
     Active Substance: DIGOXIN
     Dosage: 10 MILLIGRAM, 1 EVERY 1 HOUR
     Route: 042
  57. DILTIAZEM HYDROCHLORIDE [Suspect]
     Active Substance: DILTIAZEM HYDROCHLORIDE
     Indication: Product used for unknown indication
     Dosage: 180 MG
     Route: 048
  58. DILTIAZEM HYDROCHLORIDE [Suspect]
     Active Substance: DILTIAZEM HYDROCHLORIDE
     Dosage: 180 MG
     Route: 048
  59. DILTIAZEM HYDROCHLORIDE [Suspect]
     Active Substance: DILTIAZEM HYDROCHLORIDE
     Indication: Product used for unknown indication
     Dosage: 180 MG
     Route: 048
  60. DILTIAZEM HYDROCHLORIDE [Suspect]
     Active Substance: DILTIAZEM HYDROCHLORIDE
     Dosage: 180 MG
     Route: 048
  61. DILTIAZEM HYDROCHLORIDE [Suspect]
     Active Substance: DILTIAZEM HYDROCHLORIDE
     Dosage: UNK
     Route: 048
  62. DILTIAZEM [Suspect]
     Active Substance: DILTIAZEM
     Indication: Product used for unknown indication
     Dosage: 180 MILLIGRAM
     Route: 048
  63. DILTIAZEM [Suspect]
     Active Substance: DILTIAZEM
     Dosage: 180 MILLIGRAM
     Route: 048
  64. DILTIAZEM [Suspect]
     Active Substance: DILTIAZEM
     Indication: Product used for unknown indication
     Dosage: 180 MILLIGRAM
     Route: 048
  65. DILTIAZEM [Suspect]
     Active Substance: DILTIAZEM
     Dosage: 180 MILLIGRAM; CAPSULE CONTROLLED DELIVERY
     Route: 048
  66. DILTIAZEM [Suspect]
     Active Substance: DILTIAZEM
     Indication: Product used for unknown indication
  67. DIMENHYDRINATE [Suspect]
     Active Substance: DIMENHYDRINATE
     Indication: Product used for unknown indication
     Dosage: 50 MG, 1 EVERY 4 HOURS/6 EVERY 1 DAYS
     Route: 042
  68. DIMENHYDRINATE [Suspect]
     Active Substance: DIMENHYDRINATE
     Dosage: 50 MG, 6 EVERY 1 DAY
     Route: 042
  69. DIMENHYDRINATE [Suspect]
     Active Substance: DIMENHYDRINATE
     Dosage: 50 MG, 1 EVERY 6 HOURS
     Route: 042
  70. DIMENHYDRINATE [Suspect]
     Active Substance: DIMENHYDRINATE
     Indication: Product used for unknown indication
     Dosage: 1 DOSAGE FORMS, 1 EVERY 6 HOURS
     Route: 042
  71. DIMENHYDRINATE [Suspect]
     Active Substance: DIMENHYDRINATE
     Dosage: 50 MG, 1 EVERY 4 HOURS
     Route: 042
  72. DIMENHYDRINATE [Suspect]
     Active Substance: DIMENHYDRINATE
     Dosage: 50 MG, 6 EVERY 1 DAYS
     Route: 042
  73. DIMENHYDRINATE [Suspect]
     Active Substance: DIMENHYDRINATE
     Dosage: 50 MG
     Route: 042
  74. DIMENHYDRINATE [Suspect]
     Active Substance: DIMENHYDRINATE
     Indication: Product used for unknown indication
     Dosage: 50.0 MG, 1 EVERY 4 HOURS
     Route: 042
  75. DOXORUBICIN HYDROCHLORIDE [Suspect]
     Active Substance: DOXORUBICIN HYDROCHLORIDE
     Indication: Breast cancer
     Dosage: 106 MG, CYCLICAL
     Route: 042
  76. DOXORUBICIN HYDROCHLORIDE [Suspect]
     Active Substance: DOXORUBICIN HYDROCHLORIDE
     Dosage: 106 MG
     Route: 042
  77. DOXORUBICIN [Suspect]
     Active Substance: DOXORUBICIN
     Indication: Breast cancer
     Dosage: 106 MG
     Route: 042
  78. DOXORUBICIN [Suspect]
     Active Substance: DOXORUBICIN
     Dosage: 106 MG, 1 EVERY 2 WEEKS
     Route: 042
  79. DOXORUBICIN [Suspect]
     Active Substance: DOXORUBICIN
     Indication: Breast cancer female
     Dosage: 106 MILLIGRAM, 1 EVERY 14 DAYS
     Route: 042
  80. DOXORUBICIN [Suspect]
     Active Substance: DOXORUBICIN
     Dosage: 106 MILLIGRAM, 1 EVERY 2 WEEKS
     Route: 042
  81. DOXORUBICIN [Suspect]
     Active Substance: DOXORUBICIN
     Indication: Breast cancer female
     Dosage: 106.0 MG
     Route: 042
  82. DOXORUBICIN [Suspect]
     Active Substance: DOXORUBICIN
     Indication: Breast cancer
  83. DOXORUBICIN [Suspect]
     Active Substance: DOXORUBICIN
     Indication: Breast cancer
     Dosage: 106 MILLIGRAM, 1 EVERY 2 WEEKS
     Route: 042
  84. ENOXAPARIN SODIUM [Suspect]
     Active Substance: ENOXAPARIN SODIUM
     Indication: Product used for unknown indication
     Dosage: 50 MG, 1 EVERY 4 HOURS
     Route: 058
  85. ENOXAPARIN SODIUM [Suspect]
     Active Substance: ENOXAPARIN SODIUM
     Dosage: 40 MG, 1 EVERY 1 DAYS
     Route: 058
  86. ENOXAPARIN SODIUM [Suspect]
     Active Substance: ENOXAPARIN SODIUM
     Dosage: 40 MG, 1 EVERY 1 DAYS
     Route: 058
  87. ENOXAPARIN [Suspect]
     Active Substance: ENOXAPARIN
     Indication: Product used for unknown indication
     Dosage: 40 MILLIGRAM, 1 EVERY 1 DAYS
     Route: 058
  88. ENOXAPARIN [Suspect]
     Active Substance: ENOXAPARIN
     Dosage: 40 MILLIGRAM, 1 EVERY 1 DAYS
     Route: 058
  89. FUROSEMIDE [Suspect]
     Active Substance: FUROSEMIDE
     Indication: Breast cancer
     Dosage: 40 MG, 1 EVERY 1 DAYS
     Route: 048
  90. FUROSEMIDE [Suspect]
     Active Substance: FUROSEMIDE
     Indication: Breast cancer
     Dosage: 40 MG, 1 EVERY 1 DAYS
     Route: 048
  91. FUROSEMIDE [Suspect]
     Active Substance: FUROSEMIDE
     Indication: Product used for unknown indication
     Dosage: 40 MG, 1 EVERY 1 DAYS
     Route: 048
  92. HYDRALAZINE [Suspect]
     Active Substance: HYDRALAZINE HYDROCHLORIDE
     Indication: Product used for unknown indication
     Dosage: 10 MG, 1 EVERY 6 HOURS
     Route: 042
  93. HYDRALAZINE [Suspect]
     Active Substance: HYDRALAZINE HYDROCHLORIDE
     Dosage: 10 MG, 4 EVERY 1 DAYS
     Route: 042
  94. HYDRALAZINE [Suspect]
     Active Substance: HYDRALAZINE HYDROCHLORIDE
     Dosage: 10 MG, 6 EVERY 1 DAYS
     Route: 042
  95. HYDRALAZINE [Suspect]
     Active Substance: HYDRALAZINE HYDROCHLORIDE
     Dosage: 10 MG, 1 EVERY 4 HOURS
     Route: 042
  96. HYDRALAZINE [Suspect]
     Active Substance: HYDRALAZINE HYDROCHLORIDE
     Dosage: 10 MG, 1 EVERY 6 HOURS
     Route: 042
  97. HYDRALAZINE [Suspect]
     Active Substance: HYDRALAZINE HYDROCHLORIDE
     Dosage: 10 MG
     Route: 042
  98. HYDRALAZINE [Suspect]
     Active Substance: HYDRALAZINE HYDROCHLORIDE
     Dosage: 10 MG
     Route: 042
  99. HYDROMORPHONE HYDROCHLORIDE [Suspect]
     Active Substance: HYDROMORPHONE HYDROCHLORIDE
     Indication: Product used for unknown indication
     Dosage: UNK
     Route: 042
  100. HYDROMORPHONE HYDROCHLORIDE [Suspect]
     Active Substance: HYDROMORPHONE HYDROCHLORIDE
     Dosage: AS REQUIRED
     Route: 042
  101. HYDROMORPHONE HYDROCHLORIDE [Suspect]
     Active Substance: HYDROMORPHONE HYDROCHLORIDE
     Dosage: UNK
     Route: 042
  102. HYDROMORPHONE HYDROCHLORIDE [Suspect]
     Active Substance: HYDROMORPHONE HYDROCHLORIDE
     Dosage: UNK
     Route: 042
  103. HYDROMORPHONE [Suspect]
     Active Substance: HYDROMORPHONE
     Indication: Product used for unknown indication
     Route: 042
  104. HYDROMORPHONE [Suspect]
     Active Substance: HYDROMORPHONE
     Dosage: UNK
     Route: 065
  105. LOVENOX [Suspect]
     Active Substance: ENOXAPARIN SODIUM
     Indication: Product used for unknown indication
     Dosage: 50 MG, Q4HR
     Route: 058
  106. LOVENOX [Suspect]
     Active Substance: ENOXAPARIN SODIUM
     Dosage: 40 MG, QD
     Route: 058
  107. LOVENOX [Suspect]
     Active Substance: ENOXAPARIN SODIUM
     Indication: Product used for unknown indication
     Dosage: 40 MG, 1 EVERY 1 DAYS
     Route: 058
  108. LOVENOX [Suspect]
     Active Substance: ENOXAPARIN SODIUM
     Dosage: 40 MG, 1 EVERY 1 DAYS
     Route: 058
  109. LOVENOX [Suspect]
     Active Substance: ENOXAPARIN SODIUM
     Dosage: 50 MG, 1 EVERY 4 HOURS
     Route: 058
  110. METHYLPREDNISOLONE SODIUM SUCCINATE [Suspect]
     Active Substance: METHYLPREDNISOLONE SODIUM SUCCINATE
     Indication: Product used for unknown indication
     Dosage: 125 MG, 4 EVERY 1 DAYS
     Route: 042
  111. METHYLPREDNISOLONE SODIUM SUCCINATE [Suspect]
     Active Substance: METHYLPREDNISOLONE SODIUM SUCCINATE
     Dosage: 125 MG, 4 EVERY 1 DAYS
     Route: 042
  112. METHYLPREDNISOLONE SODIUM SUCCINATE [Suspect]
     Active Substance: METHYLPREDNISOLONE SODIUM SUCCINATE
     Indication: Product used for unknown indication
     Dosage: 125 MILLIGRAM, 1 EVERY 6 HOURS
     Route: 042
  113. METHYLPREDNISOLONE SODIUM SUCCINATE [Suspect]
     Active Substance: METHYLPREDNISOLONE SODIUM SUCCINATE
     Dosage: 125 MILLIGRAM, 1 EVERY 6 HOURS
     Route: 042
  114. METHYLPREDNISOLONE SODIUM SUCCINATE [Suspect]
     Active Substance: METHYLPREDNISOLONE SODIUM SUCCINATE
     Dosage: 125 MG, 4 EVERY 1 DAY
     Route: 042
  115. METHYLPREDNISOLONE [Suspect]
     Active Substance: METHYLPREDNISOLONE
     Indication: Product used for unknown indication
     Dosage: 125 MG, 1 EVERY 6 HOURS
     Route: 042
  116. METHYLPREDNISOLONE [Suspect]
     Active Substance: METHYLPREDNISOLONE
     Dosage: 125 MG, 1 EVERY 6 HOURS
     Route: 042
  117. METOPROLOL [Suspect]
     Active Substance: METOPROLOL
     Indication: Product used for unknown indication
     Dosage: 5 MG, 1 EVERY 6 HOURS
     Route: 042
  118. METOPROLOL [Suspect]
     Active Substance: METOPROLOL
     Dosage: 2.5 MG, 1 EVERY 6 HOURS
     Route: 042
  119. METOPROLOL [Suspect]
     Active Substance: METOPROLOL
     Dosage: 5 MG, 4 EVERY 1 DAYS
     Route: 042
  120. METOPROLOL [Suspect]
     Active Substance: METOPROLOL
     Dosage: 2.5 MG, 4 EVERY 1 DAYS
     Route: 042
  121. METOPROLOL [Suspect]
     Active Substance: METOPROLOL
     Dosage: 4 MILLIGRAM, 4 EVERY 1 DAYS
     Route: 042
  122. METOPROLOL TARTRATE [Suspect]
     Active Substance: METOPROLOL TARTRATE
     Indication: Product used for unknown indication
     Dosage: 5.0 MG, 1 EVERY 6 HOURS
     Route: 042
  123. METOPROLOL TARTRATE [Suspect]
     Active Substance: METOPROLOL TARTRATE
     Dosage: 2.5 MG, 1 EVERY 6 HOURS
     Route: 042
  124. MORPHINE HYDROCHLORIDE [Suspect]
     Active Substance: MORPHINE HYDROCHLORIDE
     Indication: Product used for unknown indication
     Route: 042
  125. MORPHINE HYDROCHLORIDE [Suspect]
     Active Substance: MORPHINE HYDROCHLORIDE
     Indication: Product used for unknown indication
     Route: 065
  126. MORPHINE HYDROCHLORIDE [Suspect]
     Active Substance: MORPHINE HYDROCHLORIDE
     Dosage: UNK
     Route: 042
  127. MORPHINE SULFATE [Suspect]
     Active Substance: MORPHINE SULFATE
     Indication: Product used for unknown indication
     Dosage: AS REQUIRED
     Route: 042
  128. MORPHINE SULFATE [Suspect]
     Active Substance: MORPHINE SULFATE
     Dosage: UNK
     Route: 042
  129. MORPHINE SULFATE [Suspect]
     Active Substance: MORPHINE SULFATE
     Dosage: UNK
     Route: 065
  130. MORPHINE SULFATE [Suspect]
     Active Substance: MORPHINE SULFATE
     Indication: Product used for unknown indication
     Route: 042
  131. MORPHINE [Suspect]
     Active Substance: MORPHINE
     Indication: Product used for unknown indication
     Dosage: 1 EVERY 10 MINS
     Route: 042
  132. PACLITAXEL [Suspect]
     Active Substance: PACLITAXEL
     Indication: Breast cancer
     Dosage: 297 MG, CYCLICAL
     Route: 042
  133. PACLITAXEL [Suspect]
     Active Substance: PACLITAXEL
     Indication: Breast cancer
     Dosage: 297 MG, 1 EVERY 14 DAYS
     Route: 042
  134. PACLITAXEL [Suspect]
     Active Substance: PACLITAXEL
     Indication: Breast cancer
     Dosage: 297 MILLIGRAM, 1 EVERY 2 WEEKS
     Route: 042
  135. PACLITAXEL [Suspect]
     Active Substance: PACLITAXEL
     Indication: Breast cancer female
     Dosage: 297 MILLIGRAM
     Route: 042
  136. PACLITAXEL [Suspect]
     Active Substance: PACLITAXEL
     Indication: Breast cancer female
     Dosage: 297 MG, CYCLICAL
     Route: 042
  137. PACLITAXEL [Suspect]
     Active Substance: PACLITAXEL
     Indication: Breast cancer
     Dosage: 297 MG, Q2WEEKS
     Route: 042
  138. PANTOPRAZOLE [Suspect]
     Active Substance: PANTOPRAZOLE
     Indication: Product used for unknown indication
     Dosage: 8 MG
     Route: 042
  139. PANTOPRAZOLE [Suspect]
     Active Substance: PANTOPRAZOLE
     Dosage: 8 MG
     Route: 042
  140. PANTOPRAZOLE [Suspect]
     Active Substance: PANTOPRAZOLE
     Indication: Product used for unknown indication
     Dosage: 8 MG, 1 EVERY 1 HOURS
     Route: 042
  141. PANTOPRAZOLE [Suspect]
     Active Substance: PANTOPRAZOLE
     Dosage: 8 MG
     Route: 042
  142. PANTOPRAZOLE [Suspect]
     Active Substance: PANTOPRAZOLE
     Indication: Product used for unknown indication
     Dosage: 8 MG, 1 EVERY 1 HOUR
     Route: 042
  143. PANTOPRAZOLE SODIUM ANHYDROUS [Suspect]
     Active Substance: PANTOPRAZOLE SODIUM ANHYDROUS
     Indication: Product used for unknown indication
     Dosage: 8 MG
     Route: 042
  144. PANTOPRAZOLE SODIUM ANHYDROUS [Suspect]
     Active Substance: PANTOPRAZOLE SODIUM ANHYDROUS
     Dosage: 8 MG, 1 EVERY 1 HOURS
     Route: 042
  145. AZITHROMYCIN ANHYDROUS [Suspect]
     Active Substance: AZITHROMYCIN ANHYDROUS
     Indication: Product used for unknown indication
     Dosage: 500 MG, 1 EVERY 1 DAYS
     Route: 042
  146. AZITHROMYCIN ANHYDROUS [Suspect]
     Active Substance: AZITHROMYCIN ANHYDROUS
     Indication: Product used for unknown indication
     Dosage: 500 MG, QD
     Route: 042
  147. CYCLOPHOSPHAMIDE [Suspect]
     Active Substance: CYCLOPHOSPHAMIDE
     Indication: Breast cancer
     Dosage: 1060 MG, CYCLICAL
     Route: 042
  148. CYCLOPHOSPHAMIDE [Suspect]
     Active Substance: CYCLOPHOSPHAMIDE
     Indication: Breast cancer
     Dosage: 1060 MG, 1 EVERY 14 DAYS
     Route: 042
  149. CYCLOPHOSPHAMIDE [Suspect]
     Active Substance: CYCLOPHOSPHAMIDE
     Indication: Breast cancer
     Dosage: 1060 MG, CYCLICAL
     Route: 042
  150. ACETAMINOPHEN\CAFFEINE\DIHYDROCODEINE BITARTRATE [Concomitant]
     Active Substance: ACETAMINOPHEN\CAFFEINE\DIHYDROCODEINE BITARTRATE
     Dosage: UNK
     Route: 065
  151. APREPITANT [Concomitant]
     Active Substance: APREPITANT
     Indication: Supportive care
     Dosage: 125.0 MG
     Route: 048
  152. APREPITANT [Concomitant]
     Active Substance: APREPITANT
     Dosage: UNK
     Route: 065
  153. APREPITANT [Concomitant]
     Active Substance: APREPITANT
     Indication: Supportive care
     Dosage: 125.0 MG
     Route: 048
  154. DEXAMETHASONE [Concomitant]
     Active Substance: DEXAMETHASONE
     Indication: Supportive care
     Dosage: 20 MG, 1 EVERY 1 DAY
     Route: 048
  155. DEXAMETHASONE [Concomitant]
     Active Substance: DEXAMETHASONE
     Dosage: UNK
     Route: 048
  156. DEXAMETHASONE [Concomitant]
     Active Substance: DEXAMETHASONE
     Indication: Supportive care
     Dosage: 20 MILLIGRAM, 1 EVERY 1 DAYS
     Route: 048
  157. DEXAMETHASONE [Concomitant]
     Active Substance: DEXAMETHASONE
     Dosage: UNK
     Route: 048
  158. DEXAMETHASONE [Concomitant]
     Active Substance: DEXAMETHASONE
     Indication: Supportive care
     Dosage: 20 MG, 1 EVERY 1 DAY
     Route: 048
  159. FILGRASTIM [Concomitant]
     Active Substance: FILGRASTIM
     Indication: Supportive care
     Dosage: UNK
     Route: 058
  160. FILGRASTIM [Concomitant]
     Active Substance: FILGRASTIM
     Dosage: 300 MICROGRAM, 1 EVERY 1 DAY
     Route: 058
  161. GABAPENTIN [Concomitant]
     Active Substance: GABAPENTIN
     Indication: Product used for unknown indication
     Dosage: UNK
     Route: 065
  162. GABAPENTIN [Concomitant]
     Active Substance: GABAPENTIN
     Indication: Product used for unknown indication
     Dosage: 100 MG, 3 EVERY 1 DAYS
     Route: 048
  163. GABAPENTIN [Concomitant]
     Active Substance: GABAPENTIN
     Dosage: 100 MG, 1 EVERY 8 HRS
     Route: 065
  164. GABAPENTIN [Concomitant]
     Active Substance: GABAPENTIN
     Dosage: UNK
     Route: 065
  165. GABAPENTIN [Concomitant]
     Active Substance: GABAPENTIN
     Dosage: UNK
  166. METOCLOPRAMIDE [Concomitant]
     Active Substance: METOCLOPRAMIDE
     Indication: Product used for unknown indication
     Dosage: 10 MG
     Route: 065
  167. METOCLOPRAMIDE [Concomitant]
     Active Substance: METOCLOPRAMIDE
     Dosage: 10 MG, 1 EVERY 6 HOURS
     Route: 048
  168. METOCLOPRAMIDE [Concomitant]
     Active Substance: METOCLOPRAMIDE
     Dosage: 10 MG, 4 EVERY 1 DAYS
     Route: 048
  169. METOCLOPRAMIDE [Concomitant]
     Active Substance: METOCLOPRAMIDE
     Dosage: 10 MG, 1 EVERY 6 HOURS
     Route: 065
  170. METOCLOPRAMIDE [Concomitant]
     Active Substance: METOCLOPRAMIDE
     Dosage: UNK
     Route: 065
  171. ONDANSETRON [Concomitant]
     Active Substance: ONDANSETRON
     Indication: Supportive care
     Dosage: 8 G, 1 EVERY 12 HOURS
     Route: 048
  172. ONDANSETRON [Concomitant]
     Active Substance: ONDANSETRON
     Dosage: 8 G, 2 EVERY 1 DAYS
     Route: 048
  173. ONDANSETRON [Concomitant]
     Active Substance: ONDANSETRON
     Dosage: UNK
     Route: 048
  174. ONDANSETRON [Concomitant]
     Active Substance: ONDANSETRON
     Route: 048
  175. ONDANSETRON [Concomitant]
     Active Substance: ONDANSETRON
     Indication: Supportive care
     Dosage: 8 GRAM, 2 EVERY 1 DAYS
     Route: 048
  176. ONDANSETRON [Concomitant]
     Active Substance: ONDANSETRON
     Dosage: 8 GRAM 1 EVERY 12 HOURS
     Route: 048
  177. ACETAMINOPHEN-CAFFEINE-CODEINE [Concomitant]
  178. ACETAMINOPHEN-CAFFEINE-CODEINE [Concomitant]
     Route: 065

REACTIONS (3)
  - Alveolitis [Fatal]
  - Atrial fibrillation [Fatal]
  - Hypoxia [Fatal]
